FAERS Safety Report 6238057-8 (Version None)
Quarter: 2009Q2

REPORT INFORMATION
  Report Type: 
  Country: None (occurrence: None)
  Receive Date: 20090622
  Receipt Date: 20090612
  Transmission Date: 20091009
  Serious: Yes (Hospitalization, Other)
  Sender: FDA-Public Use
  Company Number: FR-BAYER-200923206GPV

PATIENT
  Age: 58 Year
  Sex: Male

DRUGS (4)
  1. CIFLOX [Suspect]
     Indication: PYREXIA
     Route: 065
  2. CIFLOX [Suspect]
     Route: 065
     Dates: start: 20090506, end: 20090501
  3. TAZOCILLINE [Suspect]
     Indication: LUNG DISORDER
     Route: 042
     Dates: start: 20090508, end: 20090514
  4. AUGMENTIN [Concomitant]
     Indication: PYREXIA
     Route: 065
     Dates: start: 20090506

REACTIONS (4)
  - EOSINOPHILIA [None]
  - HYPOXIA [None]
  - PNEUMONIA [None]
  - RENAL FAILURE ACUTE [None]
